FAERS Safety Report 6011750-8 (Version None)
Quarter: 2008Q4

REPORT INFORMATION
  Report Type: 
  Country: None (occurrence: None)
  Receive Date: 20081218
  Receipt Date: 20080220
  Transmission Date: 20090506
  Serious: No
  Sender: FDA-Public Use
  Company Number: US-ABBOTT-08P-163-0439224-00

PATIENT
  Sex: Female
  Weight: 56.75 kg

DRUGS (5)
  1. MERIDIA [Suspect]
     Indication: WEIGHT CONTROL
     Route: 048
     Dates: start: 20080101, end: 20080218
  2. INSULIN [Concomitant]
     Indication: DIABETES MELLITUS
     Route: 058
  3. INSULIN ASPART [Concomitant]
     Indication: DIABETES MELLITUS
     Route: 058
  4. INSULIN GLARGINE [Concomitant]
     Indication: DIABETES MELLITUS
     Route: 058
  5. LOSARTAN POTASSIUM [Concomitant]
     Indication: HYPERTENSION
     Route: 048

REACTIONS (1)
  - DIZZINESS [None]
